FAERS Safety Report 8983756 (Version 1)
Quarter: 2012Q4

REPORT INFORMATION
  Report Type: Report from Study
  Country: CA (occurrence: CA)
  Receive Date: 20121224
  Receipt Date: 20121224
  Transmission Date: 20130627
  Serious: Yes (Other)
  Sender: FDA-Public Use
  Company Number: CA-ROCHE-1168005

PATIENT
  Age: 30 None
  Sex: Female
  Weight: 77.09 kg

DRUGS (7)
  1. OMALIZUMAB [Suspect]
     Indication: ASTHMA
     Route: 058
     Dates: start: 20050810
  2. OMALIZUMAB [Suspect]
     Route: 058
     Dates: start: 20051008
  3. SYMBICORT [Concomitant]
     Indication: PRODUCT USED FOR UNKNOWN INDICATION
     Dosage: 2 puffs
     Route: 065
  4. QVAR [Concomitant]
     Indication: PRODUCT USED FOR UNKNOWN INDICATION
  5. SINGULAIR [Concomitant]
     Indication: PRODUCT USED FOR UNKNOWN INDICATION
  6. VENTOLINE [Concomitant]
     Indication: PRODUCT USED FOR UNKNOWN INDICATION
  7. NASONEX [Concomitant]
     Indication: PRODUCT USED FOR UNKNOWN INDICATION

REACTIONS (21)
  - Haemoptysis [Not Recovered/Not Resolved]
  - Anaphylactic reaction [Recovered/Resolved]
  - Asthma [Not Recovered/Not Resolved]
  - Breech presentation [Unknown]
  - Umbilical cord compression [Unknown]
  - Lower respiratory tract infection [Unknown]
  - Nausea [Not Recovered/Not Resolved]
  - Constipation [Not Recovered/Not Resolved]
  - Sinus congestion [Not Recovered/Not Resolved]
  - Blood pressure increased [Unknown]
  - Sputum discoloured [Unknown]
  - Nasopharyngitis [Unknown]
  - Ear infection [Unknown]
  - Hypotension [Unknown]
  - Malaise [Unknown]
  - Pregnancy [Unknown]
  - Weight gain poor [Not Recovered/Not Resolved]
  - Fatigue [Unknown]
  - Injection site erythema [Unknown]
  - Injection site rash [Unknown]
  - Viral upper respiratory tract infection [Recovered/Resolved]
